FAERS Safety Report 5714919-2 (Version None)
Quarter: 2008Q2

REPORT INFORMATION
  Report Type: 
  Country: None (occurrence: None)
  Receive Date: 20080423
  Receipt Date: 20080414
  Transmission Date: 20081010
  Serious: Yes (Other)
  Sender: FDA-Public Use
  Company Number: US-BAYER-200714857NA

PATIENT

DRUGS (3)
  1. LEUKINE [Suspect]
     Indication: MALIGNANT MELANOMA STAGE III
     Route: 058
     Dates: start: 20040101, end: 20060101
  2. LEUKINE [Suspect]
     Indication: MALIGNANT MELANOMA STAGE III
     Route: 058
     Dates: start: 20060101, end: 20080207
  3. CORTISONE [Concomitant]
     Indication: EXOSTOSIS

REACTIONS (1)
  - EXOSTOSIS [None]
